FAERS Safety Report 4352340-2 (Version None)
Quarter: 2004Q2

REPORT INFORMATION
  Report Type: 
  Country: None (occurrence: None)
  Receive Date: 20040427
  Receipt Date: 20040205
  Transmission Date: 20050107
  Serious: Yes (Hospitalization)
  Sender: FDA-Public Use
  Company Number: WAES 0402USA00534

PATIENT
  Age: 75 Year
  Sex: Female

DRUGS (11)
  1. SINGULAIR [Suspect]
     Indication: ASTHMA
     Dosage: 10 MG/DAILY/PO
     Route: 048
  2. ADVAIR DISKUS 100/50 [Concomitant]
  3. PREVACID [Concomitant]
  4. PROTONIX [Concomitant]
  5. VASOTEC [Concomitant]
  6. ANALGESIC OR ANESTHETIC [Concomitant]
  7. ATENOLOL [Concomitant]
  8. BACLOFEN [Concomitant]
  9. LORAZEPAM [Concomitant]
  10. METHADONE HYDROCHLORIDE [Concomitant]
  11. PENTOXIFYLLINE [Concomitant]

REACTIONS (2)
  - DRUG INEFFECTIVE [None]
  - PNEUMONIA [None]
